FAERS Safety Report 6368632-1 (Version None)
Quarter: 2009Q3

REPORT INFORMATION
  Report Type: 
  Country: None (occurrence: None)
  Receive Date: 20090922
  Receipt Date: 20090909
  Transmission Date: 20100115
  Serious: Yes (Hospitalization)
  Sender: FDA-Public Use
  Company Number: CN-JNJFOC-20090904895

PATIENT
  Sex: Female

DRUGS (2)
  1. TIBOZOLE [Suspect]
     Route: 002
     Dates: start: 20090826, end: 20090903
  2. TIBOZOLE [Suspect]
     Indication: DRUG USE FOR UNKNOWN INDICATION
     Route: 002
     Dates: start: 20090826, end: 20090903

REACTIONS (1)
  - PURPURA [None]
